FAERS Safety Report 12781366 (Version 3)
Quarter: 2016Q4

REPORT INFORMATION
  Report Type: Report from Study
  Country: JP (occurrence: JP)
  Receive Date: 20160926
  Receipt Date: 20161124
  Transmission Date: 20170207
  Serious: Yes (Death, Hospitalization, Other)
  Sender: FDA-Public Use
  Company Number: JP-BRISTOL-MYERS SQUIBB COMPANY-BMS-2014-005704

PATIENT
  Age: 70 Year
  Sex: Male
  Weight: 87 kg

DRUGS (10)
  1. ARTIST [Concomitant]
     Active Substance: CARVEDILOL
     Indication: ANGINA PECTORIS
     Dosage: 2.5 MG, QD
     Route: 065
     Dates: end: 20160420
  2. METGLUCO [Concomitant]
     Active Substance: METFORMIN HYDROCHLORIDE
     Indication: DIABETES MELLITUS
     Dosage: 750 MG, QD
     Route: 065
     Dates: end: 20160420
  3. APIXABAN [Suspect]
     Active Substance: APIXABAN
     Indication: CEREBROVASCULAR ACCIDENT PROPHYLAXIS
     Dosage: 2.5 MG, BID
     Route: 048
     Dates: start: 20140822
  4. TAKEPRON [Concomitant]
     Active Substance: LANSOPRAZOLE
     Indication: PRODUCT USED FOR UNKNOWN INDICATION
     Dosage: 15 MG, QD
     Route: 065
     Dates: end: 20160420
  5. CLOPIDOGREL SULFATE [Concomitant]
     Active Substance: CLOPIDOGREL BISULFATE
     Indication: ANGINA PECTORIS
     Dosage: 75 MG, QD
     Route: 065
     Dates: end: 20160420
  6. BLOPRESS [Concomitant]
     Active Substance: CANDESARTAN CILEXETIL
     Indication: HYPERTENSION
     Dosage: 4 MG, QD
     Route: 065
     Dates: end: 20160420
  7. LIVALO [Concomitant]
     Active Substance: PITAVASTATIN CALCIUM
     Indication: DYSLIPIDAEMIA
     Route: 065
  8. AMARYL [Concomitant]
     Active Substance: GLIMEPIRIDE
     Indication: DIABETES MELLITUS
     Dosage: 2 MG, QD
     Route: 065
     Dates: end: 2016
  9. ENALAPRIL MALEATE. [Concomitant]
     Active Substance: ENALAPRIL MALEATE
     Indication: HYPERTENSION
     Dosage: 2.5 MG, QD
     Route: 065
     Dates: end: 20160420
  10. ASPIRIN                            /00002701/ [Concomitant]
     Active Substance: ASPIRIN
     Indication: ANGINA PECTORIS
     Dosage: 100 MG, QD
     Route: 065
     Dates: end: 20160420

REACTIONS (6)
  - Angina pectoris [Recovered/Resolved]
  - Percutaneous coronary intervention [Unknown]
  - Pharyngeal haemorrhage [Recovered/Resolved]
  - Endotracheal intubation [Unknown]
  - Prescribed underdose [Unknown]
  - Cerebellar haemorrhage [Fatal]

NARRATIVE: CASE EVENT DATE: 20141018
